FAERS Safety Report 6303902-4 (Version None)
Quarter: 2009Q3

REPORT INFORMATION
  Report Type: 
  Country: None (occurrence: None)
  Receive Date: 20090810
  Receipt Date: 20090810
  Transmission Date: 20100115
  Serious: Yes (Other)
  Sender: FDA-Public Use
  Company Number: None

PATIENT
  Sex: Female
  Weight: 69.4003 kg

DRUGS (2)
  1. AMOXICILLIN [Suspect]
     Indication: SINUSITIS
     Dosage: 500MG/300 DAY 3 PILLS TWICE A DAY FOR 14 DAYS P.O.
     Route: 048
     Dates: start: 20090731, end: 20090801
  2. AMOXICILLIN [Suspect]
     Indication: SINUSITIS
     Dosage: 500MG/300 DAY 3 PILLS TWICE A DAY FOR 14 DAYS P.O.
     Route: 048
     Dates: start: 20090720

REACTIONS (1)
  - CANDIDIASIS [None]
